FAERS Safety Report 19678355 (Version 7)
Quarter: 2023Q4

REPORT INFORMATION
  Report Type: Spontaneous
  Country: US (occurrence: US)
  Receive Date: 20210809
  Receipt Date: 20231018
  Transmission Date: 20240109
  Serious: Yes (Disabling, Other)
  Sender: FDA-Public Use
  Company Number: US-PFIZER INC-2019174639

PATIENT
  Age: 76 Year
  Sex: Female
  Weight: 65.77 kg

DRUGS (6)
  1. PREMARIN [Suspect]
     Active Substance: ESTROGENS, CONJUGATED
     Indication: Major depression
     Dosage: UNK, CYCLIC (APPLY A PEA SIZED AMOUNT TO VAGINAL OPENING 3 TO 4 TIMES PER WEEK)
     Route: 067
  2. PREMARIN [Suspect]
     Active Substance: ESTROGENS, CONJUGATED
     Indication: Hormone replacement therapy
     Dosage: UNK (2-3 TIMES A WEEK)
  3. PREMARIN [Suspect]
     Active Substance: ESTROGENS, CONJUGATED
     Indication: Menopause
  4. PREMARIN [Suspect]
     Active Substance: ESTROGENS, CONJUGATED
     Indication: Vaginal disorder
  5. OMEPRAZOLE [Concomitant]
     Active Substance: OMEPRAZOLE
     Indication: Gastrooesophageal reflux disease
     Dosage: UNK
  6. EFFEXOR [Concomitant]
     Active Substance: VENLAFAXINE HYDROCHLORIDE
     Indication: Fibromyalgia
     Dosage: UNK

REACTIONS (6)
  - Back pain [Unknown]
  - Chondropathy [Unknown]
  - Body height decreased [Unknown]
  - Illness [Unknown]
  - Expired product administered [Unknown]
  - Off label use [Unknown]

NARRATIVE: CASE EVENT DATE: 20230101
